FAERS Safety Report 15215475 (Version 1)
Quarter: 2018Q3

REPORT INFORMATION
  Report Type: Spontaneous
  Country: US (occurrence: US)
  Receive Date: 20180730
  Receipt Date: 20180730
  Transmission Date: 20181010
  Serious: No
  Sender: FDA-Public Use
  Company Number: US-ENDO PHARMACEUTICALS INC-2018-039748

PATIENT
  Age: 44 Year
  Sex: Female
  Weight: 77.1 kg

DRUGS (11)
  1. SKELAXIN [Concomitant]
     Active Substance: METAXALONE
     Indication: PRODUCT USED FOR UNKNOWN INDICATION
  2. ZOFRAN [Concomitant]
     Active Substance: ONDANSETRON HYDROCHLORIDE
     Indication: NAUSEA
  3. JARDIANCE [Concomitant]
     Active Substance: EMPAGLIFLOZIN
     Indication: DIABETES MELLITUS
  4. BUPROPION HYDROCHLORIDE XL [Concomitant]
     Active Substance: BUPROPION HYDROCHLORIDE
     Indication: EATING DISORDER
  5. PROMETHAZINE [Concomitant]
     Active Substance: PROMETHAZINE\PROMETHAZINE HYDROCHLORIDE
     Indication: NAUSEA
  6. HUMALOG [Concomitant]
     Active Substance: INSULIN LISPRO
     Indication: DIABETES MELLITUS
  7. HYDROCODONE BITARTRATE AND ACETAMINOPHEN [Concomitant]
     Active Substance: ACETAMINOPHEN\HYDROCODONE BITARTRATE
     Indication: PAIN
  8. FAMOTIDINE. [Concomitant]
     Active Substance: FAMOTIDINE
     Indication: NAUSEA
  9. PROPRANOLOL [Concomitant]
     Active Substance: PROPRANOLOL HYDROCHLORIDE
     Indication: ANXIETY
  10. SUMAVEL DOSEPRO [Suspect]
     Active Substance: SUMATRIPTAN SUCCINATE
     Indication: MIGRAINE
     Dosage: 6 MG, UNKNOWN
     Route: 058
  11. KLONOPIN [Concomitant]
     Active Substance: CLONAZEPAM
     Indication: ANXIETY

REACTIONS (2)
  - Device malfunction [Unknown]
  - Injection site haemorrhage [Recovered/Resolved]

NARRATIVE: CASE EVENT DATE: 20180612
